FAERS Safety Report 8509151-3 (Version None)
Quarter: 2012Q3

REPORT INFORMATION
  Report Type: 
  Country: None (occurrence: None)
  Receive Date: 20120713
  Receipt Date: 20120709
  Transmission Date: 20120928
  Serious: Yes (Other)
  Sender: FDA-Public Use
  Company Number: GB-GLAXOSMITHKLINE-B0813364A

PATIENT
  Sex: Male

DRUGS (2)
  1. FLUTICASONE FUROATE [Suspect]
  2. CANDESARTAN [Concomitant]

REACTIONS (2)
  - PARAESTHESIA ORAL [None]
  - DYSGEUSIA [None]
